FAERS Safety Report 5669130-0 (Version None)
Quarter: 2008Q1

REPORT INFORMATION
  Report Type: 
  Country: None (occurrence: None)
  Receive Date: 20080312
  Receipt Date: 20080312
  Transmission Date: 20080703
  Serious: Yes (Other)
  Sender: FDA-Public Use
  Company Number: None

PATIENT
  Age: 47 Year
  Sex: Male
  Weight: 81.6475 kg

DRUGS (1)
  1. NAPROXEN [Suspect]
     Dosage: 600-800 3 TIMES DAY PO
     Route: 048

REACTIONS (2)
  - BREATH ODOUR [None]
  - OEDEMA PERIPHERAL [None]
